FAERS Safety Report 7044245-3 (Version None)
Quarter: 2010Q4

REPORT INFORMATION
  Report Type: 
  Country: None (occurrence: None)
  Receive Date: 20101014
  Receipt Date: 20101006
  Transmission Date: 20110411
  Serious: No
  Sender: FDA-Public Use
  Company Number: US-BIOGENIDEC-2010BI008207

PATIENT
  Age: 55 Year
  Sex: Female

DRUGS (1)
  1. TYSABRI [Suspect]
     Indication: MULTIPLE SCLEROSIS
     Route: 042
     Dates: start: 20100223, end: 20101005

REACTIONS (19)
  - BALANCE DISORDER [None]
  - DEPRESSION [None]
  - DIZZINESS [None]
  - DYSGRAPHIA [None]
  - DYSKINESIA [None]
  - DYSPNOEA [None]
  - FATIGUE [None]
  - GAIT DISTURBANCE [None]
  - GENERAL SYMPTOM [None]
  - HEADACHE [None]
  - MEMORY IMPAIRMENT [None]
  - MENTAL IMPAIRMENT [None]
  - MULTIPLE SCLEROSIS RELAPSE [None]
  - MYALGIA [None]
  - SPEECH DISORDER [None]
  - TREMOR [None]
  - URINARY TRACT INFECTION [None]
  - VIRAL PHARYNGITIS [None]
  - VISION BLURRED [None]
